FAERS Safety Report 13941545 (Version 1)
Quarter: 2017Q3

REPORT INFORMATION
  Report Type: Spontaneous
  Country: US (occurrence: None)
  Receive Date: 20170906
  Receipt Date: 20170906
  Transmission Date: 20171127
  Serious: No
  Sender: FDA-Public Use
  Company Number: None

PATIENT
  Age: 70 Year
  Sex: Female

DRUGS (21)
  1. QVAR [Concomitant]
     Active Substance: BECLOMETHASONE DIPROPIONATE
  2. FERROUS SULFATE. [Concomitant]
     Active Substance: FERROUS SULFATE
  3. MIRALAX [Concomitant]
     Active Substance: POLYETHYLENE GLYCOL 3350
  4. ATROVENT [Concomitant]
     Active Substance: IPRATROPIUM BROMIDE
  5. MVI [Concomitant]
     Active Substance: VITAMINS
  6. CLOTRIMAZOLE. [Concomitant]
     Active Substance: CLOTRIMAZOLE
  7. REVATIO [Concomitant]
     Active Substance: SILDENAFIL CITRATE
  8. LIPITOR [Concomitant]
     Active Substance: ATORVASTATIN CALCIUM
  9. PANTOPRAZOLE [Concomitant]
     Active Substance: PANTOPRAZOLE
  10. LEVOTHYROXINE. [Concomitant]
     Active Substance: LEVOTHYROXINE
  11. FUROSEMIDE. [Concomitant]
     Active Substance: FUROSEMIDE
  12. CALCIUM CARBONATE-VIT D3 [Concomitant]
  13. DILTIAZEM. [Concomitant]
     Active Substance: DILTIAZEM
  14. ESTRACE [Concomitant]
     Active Substance: ESTRADIOL
  15. COLCHICINE. [Concomitant]
     Active Substance: COLCHICINE
  16. FISH OIL [Concomitant]
     Active Substance: FISH OIL
  17. LETAIRIS [Suspect]
     Active Substance: AMBRISENTAN
     Indication: PULMONARY ARTERIAL HYPERTENSION
     Route: 048
     Dates: start: 201410
  18. ALLOPURINOL. [Concomitant]
     Active Substance: ALLOPURINOL
  19. ASMANEX [Concomitant]
     Active Substance: MOMETASONE FUROATE
  20. LORATADINE. [Concomitant]
     Active Substance: LORATADINE
  21. KLOR-CON [Concomitant]
     Active Substance: POTASSIUM CHLORIDE

REACTIONS (7)
  - Dizziness [None]
  - Nausea [None]
  - Accidental overdose [None]
  - Flushing [None]
  - Hypotension [None]
  - Headache [None]
  - Chest pain [None]

NARRATIVE: CASE EVENT DATE: 20170905
